FAERS Safety Report 23241603 (Version 1)
Quarter: 2023Q4

REPORT INFORMATION
  Report Type: Spontaneous
  Country: FR (occurrence: FR)
  Receive Date: 20231129
  Receipt Date: 20231129
  Transmission Date: 20240110
  Serious: Yes (Hospitalization)
  Sender: FDA-Public Use
  Company Number: None

PATIENT
  Age: 63 Year
  Sex: Male
  Weight: 74 kg

DRUGS (9)
  1. METFORMIN [Suspect]
     Active Substance: METFORMIN HYDROCHLORIDE
     Indication: Type 2 diabetes mellitus
     Dosage: 2 DOSAGE FORM, QD
     Route: 048
     Dates: start: 20200427, end: 20211023
  2. PYRIMETHAMINE [Suspect]
     Active Substance: PYRIMETHAMINE
     Indication: Cerebral toxoplasmosis
     Dosage: UNK
     Route: 065
  3. RUXOLITINIB [Concomitant]
     Active Substance: RUXOLITINIB
     Indication: Acute myeloid leukaemia
     Dosage: 2 DOSAGE FORM, QD
     Route: 048
  4. PENICILLIN V [Concomitant]
     Active Substance: PENICILLIN V
     Indication: Opportunistic infection prophylaxis
     Dosage: 2 DOSAGE FORM, QD (1000000 INTERNATIONAL UNIT)
     Route: 048
  5. PREDNISONE [Concomitant]
     Active Substance: PREDNISONE
     Indication: Prophylaxis against transplant rejection
     Dosage: 2 DOSAGE FORM, QD
     Route: 048
  6. OMEPRAZOLE [Concomitant]
     Active Substance: OMEPRAZOLE
     Indication: Product used for unknown indication
     Dosage: 10 MILLIGRAM, QD
     Route: 048
  7. VALACYCLOVIR HYDROCHLORIDE [Concomitant]
     Active Substance: VALACYCLOVIR HYDROCHLORIDE
     Indication: Opportunistic infection prophylaxis
     Dosage: 500 MILLIGRAM, QD
     Route: 048
  8. Temesta [Concomitant]
     Indication: Product used for unknown indication
     Dosage: 1 DOSAGE FORM, QD
     Route: 048
  9. ACETAMINOPHEN [Concomitant]
     Active Substance: ACETAMINOPHEN
     Indication: Pain
     Dosage: UNK UNK, PRN (IF NECESSARY)
     Route: 048

REACTIONS (3)
  - Lactic acidosis [Recovered/Resolved]
  - Drug level above therapeutic [Recovered/Resolved]
  - Overdose [Unknown]

NARRATIVE: CASE EVENT DATE: 20211023
